FAERS Safety Report 5722591-0 (Version None)
Quarter: 2008Q2

REPORT INFORMATION
  Report Type: 
  Country: None (occurrence: None)
  Receive Date: 20080429
  Receipt Date: 20080421
  Transmission Date: 20081010
  Serious: Yes (Other)
  Sender: FDA-Public Use
  Company Number: BR-GILEAD-2008-0015822

PATIENT
  Age: 82 Day
  Sex: Male
  Weight: 6.2 kg

DRUGS (1)
  1. TENOFOVIR DISOPROXIL FUMARATE [Suspect]
     Indication: HIV INFECTION
     Route: 048
     Dates: start: 20071219, end: 20071223

REACTIONS (1)
  - HAEMOGLOBIN DECREASED [None]
